FAERS Safety Report 10228183 (Version 2)
Quarter: 2014Q2

REPORT INFORMATION
  Report Type: Spontaneous
  Country: JP (occurrence: JP)
  Receive Date: 20140610
  Receipt Date: 20140630
  Transmission Date: 20141212
  Serious: Yes (Other)
  Sender: FDA-Public Use
  Company Number: JP-B.I. PHARMACEUTICALS,INC./RIDGEFIELD-2014-BI-24907NB

PATIENT
  Age: 81 Year
  Sex: Male

DRUGS (1)
  1. GIOTRIF [Suspect]
     Indication: NON-SMALL CELL LUNG CANCER
     Dosage: 20 MG
     Route: 048
     Dates: start: 20140526, end: 20140527

REACTIONS (2)
  - Asthenia [Recovered/Resolved]
  - Dementia [Recovered/Resolved]
